FAERS Safety Report 9049498 (Version 4)
Quarter: 2013Q1

REPORT INFORMATION
  Report Type: Spontaneous
  Country: US (occurrence: US)
  Receive Date: 20130205
  Receipt Date: 20130320
  Transmission Date: 20140127
  Serious: Yes (Death, Life-Threatening)
  Sender: FDA-Public Use
  Company Number: US-009507513-1302USA000075

PATIENT
  Age: 42 None
  Sex: Male
  Weight: 125.17 kg

DRUGS (6)
  1. SAPHRIS [Suspect]
     Indication: BIPOLAR DISORDER
     Dosage: 5 MG, HS
     Route: 048
  2. SAPHRIS [Suspect]
     Indication: BIPOLAR DISORDER
     Dosage: 10 MG, HS
     Route: 048
  3. XANAX [Concomitant]
     Dosage: 2 MG, BID
  4. NORVASC [Concomitant]
  5. ACCUPRIL [Concomitant]
  6. VICODIN [Concomitant]

REACTIONS (7)
  - Death [Fatal]
  - Somnolence [Unknown]
  - Snoring [Unknown]
  - Sedation [Unknown]
  - Dyspnoea [Unknown]
  - Underdose [Unknown]
  - Inappropriate schedule of drug administration [Unknown]
